FAERS Safety Report 6565899-1 (Version None)
Quarter: 2010Q1

REPORT INFORMATION
  Report Type: 
  Country: None (occurrence: None)
  Receive Date: 20100201
  Receipt Date: 20100120
  Transmission Date: 20100710
  Serious: Yes (Other)
  Sender: FDA-Public Use
  Company Number: FR-GILEAD-2009-0022907

PATIENT
  Sex: Male
  Weight: 63 kg

DRUGS (3)
  1. VIREAD [Suspect]
     Indication: DRUG USE FOR UNKNOWN INDICATION
     Dates: start: 20020401, end: 20090101
  2. KALETRA [Concomitant]
     Dates: start: 20070101
  3. RETROVIR [Concomitant]
     Dates: start: 20020101

REACTIONS (4)
  - NOCTURIA [None]
  - OSTEOPOROSIS [None]
  - POLLAKIURIA [None]
  - TUBULOINTERSTITIAL NEPHRITIS [None]
